FAERS Safety Report 11158545 (Version 1)
Quarter: 2015Q2

REPORT INFORMATION
  Report Type: Spontaneous
  Country: US (occurrence: None)
  Receive Date: 20150514
  Receipt Date: 20150514
  Transmission Date: 20150821
  Serious: Yes (Death)
  Sender: FDA-Public Use
  Company Number: 2015010055

PATIENT
  Age: 27 Year
  Sex: Male

DRUGS (6)
  1. PHENOBARBITAL (PHENOBARBITAL) [Suspect]
     Active Substance: PHENOBARBITAL
  2. OXYCODONE [Suspect]
     Active Substance: OXYCODONE
  3. HYDROXYZINE (HYDROXYZINE) [Suspect]
     Active Substance: HYDROXYZINE HYDROCHLORIDE
  4. ETHANOL (ETHANOL) [Suspect]
     Active Substance: ALCOHOL
  5. ZOLPIDEM (ZOLPIDEM) [Suspect]
     Active Substance: ZOLPIDEM TARTRATE
  6. QUETIAPINE (QUETIAPINE) [Suspect]
     Active Substance: QUETIAPINE

REACTIONS (1)
  - Completed suicide [None]

NARRATIVE: CASE EVENT DATE: 2013
